FAERS Safety Report 7183070-X (Version None)
Quarter: 2010Q4

REPORT INFORMATION
  Report Type: 
  Country: None (occurrence: None)
  Receive Date: 20101222
  Receipt Date: 20100622
  Transmission Date: 20110411
  Serious: No
  Sender: FDA-Public Use
  Company Number: A0856356A

PATIENT
  Age: 62 Year
  Sex: Female
  Weight: 57.3 kg

DRUGS (1)
  1. RYTHMOL [Suspect]
     Dosage: 150MG PER DAY
     Route: 065
     Dates: start: 20080630, end: 20100201

REACTIONS (1)
  - DRUG EFFECT DECREASED [None]
